FAERS Safety Report 7392346-2 (Version None)
Quarter: 2011Q2

REPORT INFORMATION
  Report Type: 
  Country: None (occurrence: None)
  Receive Date: 20110404
  Receipt Date: 20110321
  Transmission Date: 20111010
  Serious: Yes (Hospitalization)
  Sender: FDA-Public Use
  Company Number: CA-JNJFOC-20110312258

PATIENT
  Sex: Female
  Weight: 75 kg

DRUGS (5)
  1. INSULIN [Concomitant]
     Dosage: DAILY TIMES 5 ON AVERAGE
  2. PRILOSEC [Concomitant]
  3. REMICADE [Suspect]
     Indication: RHEUMATOID ARTHRITIS
     Route: 042
  4. CELEBREX [Concomitant]
  5. AZATHIOPRINE [Concomitant]

REACTIONS (2)
  - WRIST FRACTURE [None]
  - FALL [None]
